FAERS Safety Report 6134246-1 (Version None)
Quarter: 2009Q1

REPORT INFORMATION
  Report Type: 
  Country: None (occurrence: None)
  Receive Date: 20090325
  Receipt Date: 20090310
  Transmission Date: 20090719
  Serious: Yes (Hospitalization, Other)
  Sender: FDA-Public Use
  Company Number: 2009BI003729

PATIENT
  Sex: Female

DRUGS (15)
  1. ZEVALIN [Suspect]
     Indication: B-CELL LYMPHOMA
     Dosage: 14 BQ;1X;IV
     Route: 042
     Dates: start: 20081205, end: 20081205
  2. RITUXIMAB [Concomitant]
  3. CYCLOPHOSPHAMIDE [Concomitant]
  4. DOXORUBICIN HCL [Concomitant]
  5. HYDROCHLORIDE [Concomitant]
  6. VINCRISTINE [Concomitant]
  7. PREDNISONE [Concomitant]
  8. METHOTREXATE [Concomitant]
  9. TENORMIN [Concomitant]
  10. TENORMIN [Concomitant]
  11. PROZAC [Concomitant]
  12. LEXOMIL [Concomitant]
  13. LENOGRASTIM [Concomitant]
  14. SKENAN [Concomitant]
  15. PYOSTACINE [Concomitant]

REACTIONS (3)
  - ANAEMIA [None]
  - NEUTROPENIA [None]
  - THROMBOCYTOPENIA [None]
